FAERS Safety Report 21129736 (Version 1)
Quarter: 2022Q3

REPORT INFORMATION
  Report Type: Spontaneous
  Country: IL (occurrence: IL)
  Receive Date: 20220726
  Receipt Date: 20220726
  Transmission Date: 20221026
  Serious: No
  Sender: FDA-Public Use
  Company Number: IL-ALKEM LABORATORIES LIMITED-IL-ALKEM-2022-06293

PATIENT
  Age: 16 Year
  Sex: Female

DRUGS (1)
  1. LACOSAMIDE [Suspect]
     Active Substance: LACOSAMIDE
     Indication: Epilepsy
     Dosage: 2.9 MILLIGRAM/KILOGRAM/DAY
     Route: 048

REACTIONS (3)
  - Balance disorder [Unknown]
  - Nausea [Unknown]
  - Headache [Unknown]
